FAERS Safety Report 15877159 (Version 1)
Quarter: 2019Q1

REPORT INFORMATION
  Report Type: Spontaneous
  Country: FR (occurrence: FR)
  Receive Date: 20190128
  Receipt Date: 20190128
  Transmission Date: 20190417
  Serious: Yes (Hospitalization)
  Sender: FDA-Public Use
  Company Number: FR-SA-2019SA016174

PATIENT
  Age: 50 Year
  Sex: Male
  Weight: 53.4 kg

DRUGS (2)
  1. OXALIPLATIN. [Suspect]
     Active Substance: OXALIPLATIN
     Indication: RECTAL CANCER
     Dosage: 135 MG, TOTAL
     Route: 041
     Dates: start: 20181126, end: 20181126
  2. CALCIUM FOLINATE [Suspect]
     Active Substance: LEUCOVORIN CALCIUM
     Indication: RECTAL CANCER
     Dosage: 636 MG, TOTAL
     Route: 041
     Dates: start: 20181126, end: 20181126

REACTIONS (4)
  - Rash [Recovered/Resolved]
  - Overdose [Unknown]
  - Oxygen saturation decreased [Recovered/Resolved]
  - Tremor [Recovered/Resolved]

NARRATIVE: CASE EVENT DATE: 20181126
